FAERS Safety Report 15935871 (Version 1)
Quarter: 2019Q1

REPORT INFORMATION
  Report Type: Report from Study
  Country: DE (occurrence: DE)
  Receive Date: 20190208
  Receipt Date: 20190208
  Transmission Date: 20190417
  Serious: Yes (Hospitalization)
  Sender: FDA-Public Use
  Company Number: DE-ACCORD-106235

PATIENT
  Age: 58 Year
  Sex: Female
  Weight: 88 kg

DRUGS (9)
  1. CORTISONE [Concomitant]
     Active Substance: CORTISONE\HYDROCORTISONE
     Indication: RASH
     Route: 058
  2. BEPANTHENE [Concomitant]
     Active Substance: DEXPANTHENOL
     Indication: EPISTAXIS
     Route: 065
  3. CAPECITABINE. [Suspect]
     Active Substance: CAPECITABINE
     Indication: BREAST CANCER
     Dosage: 3000 MG FROM 21-MAR-2016 TO 15-MAY-2016
     Route: 048
     Dates: start: 20160704, end: 20160828
  4. XARELTO [Concomitant]
     Active Substance: RIVAROXABAN
     Route: 058
  5. LOPERAMIDE [Concomitant]
     Active Substance: LOPERAMIDE
     Indication: DIARRHOEA
     Route: 048
  6. CLEXANE [Concomitant]
     Active Substance: ENOXAPARIN SODIUM
     Route: 058
     Dates: start: 20160902, end: 20160911
  7. DEXPANTHENOL. [Concomitant]
     Active Substance: DEXPANTHENOL
     Indication: MUCOSAL INFLAMMATION
     Route: 048
     Dates: start: 20160208, end: 20160214
  8. LIDOCAINE HYDROCHLORIDE. [Concomitant]
     Active Substance: LIDOCAINE HYDROCHLORIDE
     Indication: MUCOSAL INFLAMMATION
     Route: 048
  9. BEVACIZUMAB. [Suspect]
     Active Substance: BEVACIZUMAB
     Indication: BREAST CANCER
     Dosage: 1170 MG FROM 04-JUL-2016 TO 04-JUL-2016
     Route: 042
     Dates: start: 201608, end: 20160815

REACTIONS (1)
  - Thrombosis [Recovered/Resolved]

NARRATIVE: CASE EVENT DATE: 20160902
